FAERS Safety Report 6914536-2 (Version None)
Quarter: 2010Q3

REPORT INFORMATION
  Report Type: 
  Country: None (occurrence: None)
  Receive Date: 20100809
  Receipt Date: 20100729
  Transmission Date: 20110219
  Serious: Yes (Other)
  Sender: FDA-Public Use
  Company Number: CA-JNJFOC-20100800651

PATIENT
  Sex: Female
  Weight: 95 kg

DRUGS (1)
  1. REMICADE [Suspect]
     Indication: PYODERMA GANGRENOSUM
     Route: 042

REACTIONS (7)
  - ASTHENIA [None]
  - HEART RATE INCREASED [None]
  - NAUSEA [None]
  - PALLOR [None]
  - PULSE ABNORMAL [None]
  - URINE ABNORMALITY [None]
  - VOMITING [None]
